FAERS Safety Report 5893848-8 (Version None)
Quarter: 2008Q3

REPORT INFORMATION
  Report Type: 
  Country: None (occurrence: None)
  Receive Date: 20080923
  Receipt Date: 20071105
  Transmission Date: 20090109
  Serious: No
  Sender: FDA-Public Use
  Company Number: US-ASTRAZENECA-2007UW25712

PATIENT
  Age: 50 Year
  Sex: Female
  Weight: 62.1 kg

DRUGS (2)
  1. SEROQUEL [Suspect]
     Indication: INSOMNIA
     Route: 048
     Dates: start: 20070401
  2. CELEXA [Concomitant]

REACTIONS (4)
  - BLEPHAROSPASM [None]
  - DYSKINESIA [None]
  - MUSCLE SPASMS [None]
  - VISION BLURRED [None]
